FAERS Safety Report 8061867-1 (Version None)
Quarter: 2012Q1

REPORT INFORMATION
  Report Type: 
  Country: None (occurrence: None)
  Receive Date: 20120123
  Receipt Date: 20120118
  Transmission Date: 20120608
  Serious: Yes (Death, Hospitalization)
  Sender: FDA-Public Use
  Company Number: US-VERTEX PHARMACEUTICALS INC.-AE-2011-002694

PATIENT
  Sex: Male
  Weight: 69.916 kg

DRUGS (8)
  1. PEG-INTRON [Concomitant]
     Indication: HEPATITIS C
     Dates: start: 20110722, end: 20111006
  2. RIBAVIRIN [Concomitant]
     Indication: HEPATITIS C
     Route: 048
     Dates: start: 20110722, end: 20111006
  3. FOSAMAX [Concomitant]
     Dates: end: 20111006
  4. INCIVEK [Suspect]
     Indication: HEPATITIS C
  5. ADDERALL 5 [Concomitant]
     Indication: ATTENTION DEFICIT/HYPERACTIVITY DISORDER
     Dates: end: 20111006
  6. ATENOLOL [Concomitant]
     Indication: HYPERTENSION
     Dates: end: 20111006
  7. HUMIRA [Concomitant]
     Indication: CROHN'S DISEASE
     Dates: end: 20111006
  8. LUVOX [Concomitant]
     Dates: end: 20111006

REACTIONS (2)
  - PNEUMONIA [None]
  - RESPIRATORY FAILURE [None]
